FAERS Safety Report 4376919-7 (Version None)
Quarter: 2004Q2

REPORT INFORMATION
  Report Type: 
  Country: None (occurrence: None)
  Receive Date: 20040608
  Receipt Date: 20040602
  Transmission Date: 20050107
  Serious: Yes (Other)
  Sender: FDA-Public Use
  Company Number: 200051127BVD

PATIENT
  Age: 22 Year
  Sex: Female

DRUGS (2)
  1. AVELOX [Suspect]
     Indication: SINOBRONCHITIS
     Dosage: 400 MG, TOTAL DAILY, ORAL
     Route: 048
     Dates: start: 19991126, end: 19991127
  2. ACC 200 [Concomitant]

REACTIONS (3)
  - ANXIETY [None]
  - HALLUCINATION [None]
  - SUICIDAL IDEATION [None]
